FAERS Safety Report 8008399-4 (Version None)
Quarter: 2011Q4

REPORT INFORMATION
  Report Type: 
  Country: None (occurrence: None)
  Receive Date: 20111227
  Receipt Date: 20111220
  Transmission Date: 20120403
  Serious: Yes (Hospitalization)
  Sender: FDA-Public Use
  Company Number: US-ROCHE-1023938

PATIENT
  Age: 46 Year
  Sex: Male
  Weight: 84.1 kg

DRUGS (5)
  1. MYCOPHENOLATE MOFETIL (CELLCEPT) [Suspect]
     Indication: PRODUCT USED FOR UNKNOWN INDICATION
     Dates: end: 20110726
  2. VALCYTE [Suspect]
     Indication: PRODUCT USED FOR UNKNOWN INDICATION
     Dates: end: 20110726
  3. SULFAMETHOXAZOLE AND TRIMETHOPRIM [Suspect]
     Indication: PRODUCT USED FOR UNKNOWN INDICATION
     Dates: end: 20110726
  4. BLINDED ANIDULAFUNGIN [Suspect]
     Indication: ANTIFUNGAL PROPHYLAXIS
     Dosage: ONCE DAILY, RECENT DOSE: 26/JUL/2011
     Route: 042
     Dates: start: 20110615
  5. FLUCONAZOLE [Suspect]
     Indication: ANTIFUNGAL PROPHYLAXIS
     Dosage: ONCE DAILY, RECENT DOSE: 26/JUL/2011
     Route: 042
     Dates: start: 20110615, end: 20110726

REACTIONS (2)
  - DEVICE RELATED INFECTION [None]
  - PANCYTOPENIA [None]
